FAERS Safety Report 16820677 (Version 1)
Quarter: 2019Q3

REPORT INFORMATION
  Report Type: Report from Study
  Country: US (occurrence: US)
  Receive Date: 20190918
  Receipt Date: 20190918
  Transmission Date: 20191005
  Serious: Yes (Hospitalization, Other)
  Sender: FDA-Public Use
  Company Number: US-ROCHE-2404672

PATIENT
  Sex: Female

DRUGS (1)
  1. OCREVUS [Suspect]
     Active Substance: OCRELIZUMAB
     Indication: SECONDARY PROGRESSIVE MULTIPLE SCLEROSIS
     Route: 042

REACTIONS (5)
  - Off label use [Unknown]
  - Hyperlipidaemia [Unknown]
  - Intentional product use issue [Unknown]
  - Urinary tract infection [Unknown]
  - Multiple sclerosis [Unknown]
